FAERS Safety Report 8276953-0 (Version None)
Quarter: 2012Q2

REPORT INFORMATION
  Report Type: 
  Country: None (occurrence: None)
  Receive Date: 20120412
  Receipt Date: 20120403
  Transmission Date: 20120825
  Serious: Yes (Death, Hospitalization)
  Sender: FDA-Public Use
  Company Number: US-ROCHE-1056254

PATIENT
  Sex: Female

DRUGS (3)
  1. TAMIFLU [Suspect]
     Indication: INFLUENZA
     Route: 048
  2. DECONGESTANT (UNK INGREDIENTS) [Concomitant]
  3. TYLENOL (CAPLET) [Concomitant]

REACTIONS (1)
  - MYOCARDIAL INFARCTION [None]
